FAERS Safety Report 7607664-X (Version None)
Quarter: 2011Q3

REPORT INFORMATION
  Report Type: 
  Country: None (occurrence: None)
  Receive Date: 20110713
  Receipt Date: 20110321
  Transmission Date: 20111222
  Serious: Yes (Hospitalization, Disabling)
  Sender: FDA-Public Use
  Company Number: PHHY2011US59793

PATIENT
  Sex: Female

DRUGS (14)
  1. PHENAZOPYRIDINE HCL TAB [Concomitant]
  2. SULFAMETHOPRIM [Concomitant]
  3. FINASTERIDE [Concomitant]
  4. SPIRONOLACTONE [Concomitant]
  5. TASIGNA [Suspect]
     Indication: CHRONIC MYELOID LEUKAEMIA
     Dosage: 200 MG, BID
     Route: 048
     Dates: start: 20100312
  6. DOC-Q-LACE [Concomitant]
  7. TAMSULOSIN HCL [Concomitant]
  8. LANTUS [Concomitant]
  9. HYDROCODONE [Concomitant]
  10. FLUCONAZOLE [Concomitant]
  11. AMLODIPINE BESYLATE [Concomitant]
  12. LISINOPRIL [Concomitant]
     Dosage: UNK
  13. CIPROFLOXACIN [Concomitant]
  14. PLAVIX [Concomitant]

REACTIONS (4)
  - URINARY TRACT INFECTION [None]
  - WALKING AID USER [None]
  - BACTERIAL INFECTION [None]
  - PNEUMONIA [None]
